FAERS Safety Report 13885448 (Version 30)
Quarter: 2025Q2

REPORT INFORMATION
  Report Type: Spontaneous
  Country: US (occurrence: US)
  Receive Date: 20170821
  Receipt Date: 20250626
  Transmission Date: 20250717
  Serious: Yes (Other)
  Sender: PFIZER
  Company Number: US-PFIZER INC-2017356763

PATIENT
  Age: 70 Year
  Sex: Female
  Weight: 59 kg

DRUGS (22)
  1. XALKORI [Suspect]
     Active Substance: CRIZOTINIB
     Indication: Non-small cell lung cancer stage IV
     Dosage: 200 MG, 2X/DAY
     Route: 048
     Dates: start: 20170726, end: 2017
  2. XALKORI [Suspect]
     Active Substance: CRIZOTINIB
     Dosage: 200 MG, 2X/DAY
     Route: 048
     Dates: start: 20170805, end: 2017
  3. XALKORI [Suspect]
     Active Substance: CRIZOTINIB
     Dosage: 250 MG, 2X/DAY
     Route: 048
     Dates: start: 2017, end: 2017
  4. XALKORI [Suspect]
     Active Substance: CRIZOTINIB
     Dosage: 250 MG, 2X/DAY
     Route: 048
     Dates: start: 2017, end: 20170906
  5. XALKORI [Suspect]
     Active Substance: CRIZOTINIB
     Dosage: 250 MG, 2X/DAY
     Route: 048
     Dates: start: 20171218, end: 20180106
  6. XALKORI [Suspect]
     Active Substance: CRIZOTINIB
     Dosage: 250 MG, 1X/DAY (IN THE EVENING)
     Route: 048
     Dates: start: 20180107, end: 2018
  7. XALKORI [Suspect]
     Active Substance: CRIZOTINIB
     Dosage: 400 MG, 1X/DAY
     Route: 048
     Dates: start: 2018
  8. XALKORI [Suspect]
     Active Substance: CRIZOTINIB
     Dosage: 200 MG, 1X/DAY, 200MG ONE CAPSULE BY MOUTH EVERY DAY
     Route: 048
     Dates: start: 20170805
  9. XALKORI [Suspect]
     Active Substance: CRIZOTINIB
     Dosage: 200 MG, DAILY
     Route: 048
  10. XALKORI [Suspect]
     Active Substance: CRIZOTINIB
  11. XALKORI [Suspect]
     Active Substance: CRIZOTINIB
     Dosage: 200 MG, 1X/DAY
     Route: 048
  12. XALKORI [Suspect]
     Active Substance: CRIZOTINIB
     Dosage: TAKE 1 CAPSULE BY MOUTH DAILY, MAY TAKE WITH OR WITHOUT FOOD, SWALLOW CAPSULES WHOLE.
     Route: 048
  13. XALKORI [Suspect]
     Active Substance: CRIZOTINIB
     Dosage: 200MG ONCE A DAY
  14. XARELTO [Concomitant]
     Active Substance: RIVAROXABAN
     Indication: Hypercoagulation
     Dosage: 20 MG, 1X/DAY
     Route: 048
     Dates: start: 20160428, end: 2016
  15. XARELTO [Concomitant]
     Active Substance: RIVAROXABAN
     Indication: Cerebrovascular accident prophylaxis
     Dosage: 20 MG, DAILY
     Route: 048
     Dates: start: 201605, end: 2016
  16. XARELTO [Concomitant]
     Active Substance: RIVAROXABAN
     Dosage: 10 MG, 1X/DAY
     Route: 048
     Dates: start: 2016
  17. SYNTHROID [Concomitant]
     Active Substance: LEVOTHYROXINE SODIUM
     Indication: Hypothyroidism
     Dosage: 50 UG, ONCE DAILY
     Dates: start: 2006
  18. SYNTHROID [Concomitant]
     Active Substance: LEVOTHYROXINE SODIUM
     Indication: Thyroid disorder
     Dates: start: 2014
  19. SYNTHROID [Concomitant]
     Active Substance: LEVOTHYROXINE SODIUM
     Dates: start: 2014
  20. SYNTHROID [Concomitant]
     Active Substance: LEVOTHYROXINE SODIUM
     Dosage: 37 UG, DAILY
  21. NORTRIPTYLINE [Concomitant]
     Active Substance: NORTRIPTYLINE
     Indication: Aura
     Dates: start: 201605
  22. XANAX [Concomitant]
     Active Substance: ALPRAZOLAM
     Indication: Insomnia
     Dosage: UNK, ONCE DAILY (HALF OF 0.25 ONLY TAKEN AT NIGHT)

REACTIONS (45)
  - Renal impairment [Unknown]
  - Renal failure [Unknown]
  - Off label use [Unknown]
  - Nausea [Recovered/Resolved]
  - Vomiting [Recovered/Resolved]
  - Retching [Recovered/Resolved]
  - Migraine with aura [Recovered/Resolved]
  - Condition aggravated [Recovered/Resolved]
  - Hypoacusis [Recovered/Resolved]
  - Diarrhoea [Recovered/Resolved]
  - Oesophageal pain [Recovered/Resolved]
  - Dyspepsia [Recovered/Resolved]
  - Hyperchlorhydria [Recovered/Resolved]
  - Dysphagia [Recovered/Resolved]
  - Dry eye [Not Recovered/Not Resolved]
  - Pulmonary mass [Not Recovered/Not Resolved]
  - Ageusia [Recovered/Resolved]
  - Photophobia [Recovered/Resolved]
  - Decreased appetite [Not Recovered/Not Resolved]
  - Joint swelling [Not Recovered/Not Resolved]
  - Peripheral swelling [Not Recovered/Not Resolved]
  - Odynophagia [Recovered/Resolved]
  - Chest pain [Recovered/Resolved]
  - Feeling abnormal [Recovered/Resolved]
  - Balance disorder [Recovered/Resolved]
  - Eye pain [Not Recovered/Not Resolved]
  - Foreign body sensation in eyes [Not Recovered/Not Resolved]
  - Aphthous ulcer [Not Recovered/Not Resolved]
  - Glossodynia [Not Recovered/Not Resolved]
  - Oral candidiasis [Not Recovered/Not Resolved]
  - Mucosal inflammation [Not Recovered/Not Resolved]
  - Constipation [Not Recovered/Not Resolved]
  - Enamel anomaly [Unknown]
  - Arthralgia [Not Recovered/Not Resolved]
  - Visual impairment [Not Recovered/Not Resolved]
  - Tongue ulceration [Not Recovered/Not Resolved]
  - Myalgia [Not Recovered/Not Resolved]
  - Muscle spasms [Unknown]
  - Dry mouth [Unknown]
  - Gait disturbance [Unknown]
  - Rash pruritic [Not Recovered/Not Resolved]
  - Rash [Unknown]
  - Stomatitis [Unknown]
  - Mouth swelling [Unknown]
  - Swollen tongue [Unknown]

NARRATIVE: CASE EVENT DATE: 20170801
